FAERS Safety Report 5048073-X (Version None)
Quarter: 2006Q3

REPORT INFORMATION
  Report Type: 
  Country: None (occurrence: None)
  Receive Date: 20060711
  Receipt Date: 20050217
  Transmission Date: 20061208
  Serious: Yes (Hospitalization)
  Sender: FDA-Public Use
  Company Number: CL-ROCHE-395776

PATIENT
  Age: 63 Year
  Sex: Female

DRUGS (3)
  1. CAPECITABINE [Suspect]
     Indication: BREAST CANCER
     Dosage: GIVEN FOR FOURTEEN DAYS OUT OF TWENTY-ONE DAY CYCLE.
     Route: 048
     Dates: start: 20041229, end: 20050108
  2. IXABEPILONE [Suspect]
     Indication: BREAST CANCER
     Dosage: GIVEN ON DAY ONE OF A 21 DAY CYCLE.
     Route: 042
     Dates: start: 20041229, end: 20041229
  3. OMEPRAZOLE [Concomitant]
     Dates: start: 20040615

REACTIONS (7)
  - DIARRHOEA [None]
  - FEBRILE NEUTROPENIA [None]
  - HYPONATRAEMIA [None]
  - INFECTION [None]
  - LUNG INFILTRATION [None]
  - PLEURAL EFFUSION [None]
  - URINARY RETENTION [None]
